FAERS Safety Report 17790643 (Version 3)
Quarter: 2020Q3

REPORT INFORMATION
  Report Type: Spontaneous
  Country: US (occurrence: US)
  Receive Date: 20200515
  Receipt Date: 20200708
  Transmission Date: 20201102
  Serious: No
  Sender: FDA-Public Use
  Company Number: US-SA-2020SA121985

PATIENT

DRUGS (2)
  1. DUPIXENT [Suspect]
     Active Substance: DUPILUMAB
     Indication: DERMATITIS ATOPIC
     Dosage: 300 MG, QOW
     Route: 058
  2. DUPIXENT [Suspect]
     Active Substance: DUPILUMAB
     Indication: PSORIASIS

REACTIONS (5)
  - Product use in unapproved indication [Unknown]
  - Pruritus [Unknown]
  - Dandruff [Unknown]
  - Injection site mass [Unknown]
  - Psoriasis [Unknown]

NARRATIVE: CASE EVENT DATE: 202004
